FAERS Safety Report 5828592-6 (Version None)
Quarter: 2008Q3

REPORT INFORMATION
  Report Type: 
  Country: None (occurrence: None)
  Receive Date: 20080729
  Receipt Date: 20080729
  Transmission Date: 20090109
  Serious: Yes (Other)
  Sender: FDA-Public Use
  Company Number: None

PATIENT
  Age: 32 Year
  Sex: Female
  Weight: 77.1115 kg

DRUGS (1)
  1. MIRENA [Suspect]
     Indication: CONTRACEPTION
     Dates: start: 20080522, end: 20080727

REACTIONS (8)
  - ALOPECIA [None]
  - BACK PAIN [None]
  - FEAR [None]
  - LETHARGY [None]
  - MENORRHAGIA [None]
  - MIGRAINE [None]
  - PAIN [None]
  - VERTIGO [None]
